FAERS Safety Report 4738280-5 (Version None)
Quarter: 2005Q3

REPORT INFORMATION
  Report Type: 
  Country: None (occurrence: None)
  Receive Date: 20050803
  Receipt Date: 20050720
  Transmission Date: 20060218
  Serious: Yes (Hospitalization)
  Sender: FDA-Public Use
  Company Number: CHWYE846520JUL05

PATIENT
  Age: 77 Year
  Sex: Female

DRUGS (19)
  1. EFFEXOR [Suspect]
     Indication: PERSONALITY DISORDER
     Dosage: SEE IMAGE, ORAL
     Route: 048
     Dates: start: 20050208, end: 20050306
  2. EFFEXOR [Suspect]
     Indication: PERSONALITY DISORDER
     Dosage: SEE IMAGE, ORAL
     Route: 048
     Dates: start: 20050307, end: 20050413
  3. EFFEXOR [Suspect]
     Indication: PERSONALITY DISORDER
     Dosage: SEE IMAGE, ORAL
     Route: 048
     Dates: start: 20050414, end: 20050503
  4. EFFEXOR [Suspect]
     Indication: PERSONALITY DISORDER
     Dosage: SEE IMAGE, ORAL
     Route: 048
     Dates: start: 20050504, end: 20050602
  5. TRILEPTAL [Suspect]
     Dosage: SEE IMAGE, ORAL
     Route: 048
     Dates: start: 20040827, end: 20050116
  6. TRILEPTAL [Suspect]
     Dosage: SEE IMAGE, ORAL
     Route: 048
     Dates: start: 20050117, end: 20050120
  7. TRILEPTAL [Suspect]
     Dosage: SEE IMAGE, ORAL
     Route: 048
     Dates: start: 20050121, end: 20050413
  8. TRILEPTAL [Suspect]
     Dosage: SEE IMAGE, ORAL
     Route: 048
     Dates: start: 20050414, end: 20050428
  9. TRILEPTAL [Suspect]
     Dosage: SEE IMAGE, ORAL
     Route: 048
     Dates: start: 20050429, end: 20050504
  10. TRILEPTAL [Suspect]
     Dosage: SEE IMAGE, ORAL
     Route: 048
     Dates: start: 20050505, end: 20050523
  11. TRILEPTAL [Suspect]
     Dosage: SEE IMAGE, ORAL
     Route: 048
     Dates: start: 20050524, end: 20050613
  12. LORAZEPAM [Concomitant]
  13. BEROCCA [Concomitant]
  14. ACETAMINOPHEN [Concomitant]
  15. IBUPROFEN [Concomitant]
  16. ASPIRIN [Concomitant]
  17. ACETAMINOPHEN [Concomitant]
  18. REMERON [Concomitant]
  19. HALDOL [Concomitant]

REACTIONS (13)
  - ANTIDEPRESSANT DRUG LEVEL INCREASED [None]
  - BLOOD ALKALINE PHOSPHATASE [None]
  - BLOOD ALKALINE PHOSPHATASE INCREASED [None]
  - BLOOD GLUCOSE INCREASED [None]
  - BONE PAIN [None]
  - CONDITION AGGRAVATED [None]
  - DIARRHOEA [None]
  - DRUG INTERACTION [None]
  - FALL [None]
  - HEADACHE [None]
  - HYPONATRAEMIA [None]
  - PELVIC FRACTURE [None]
  - VOMITING [None]
